FAERS Safety Report 17848206 (Version 3)
Quarter: 2020Q3

REPORT INFORMATION
  Report Type: Report from Study
  Country: None (occurrence: US)
  Receive Date: 20200601
  Receipt Date: 20200716
  Transmission Date: 20201103
  Serious: Yes (Other)
  Sender: FDA-Public Use
  Company Number: US-ABBVIE-20K-163-3377154-00

PATIENT
  Sex: Female
  Weight: 105.33 kg

DRUGS (2)
  1. SKYRIZI [Suspect]
     Active Substance: RISANKIZUMAB-RZAA
     Indication: PSORIASIS
     Route: 058
     Dates: start: 201906
  2. SKYRIZI [Suspect]
     Active Substance: RISANKIZUMAB-RZAA
     Route: 058

REACTIONS (8)
  - Cataract [Recovering/Resolving]
  - Therapeutic response shortened [Unknown]
  - Cataract subcapsular [Recovering/Resolving]
  - Asthma [Unknown]
  - Psoriasis [Recovering/Resolving]
  - Rash macular [Not Recovered/Not Resolved]
  - Aphonia [Recovering/Resolving]
  - Eyelid ptosis [Not Recovered/Not Resolved]

NARRATIVE: CASE EVENT DATE: 2019
